FAERS Safety Report 21731728 (Version 3)
Quarter: 2023Q1

REPORT INFORMATION
  Report Type: Report from Study
  Country: CA (occurrence: CA)
  Receive Date: 20221215
  Receipt Date: 20230109
  Transmission Date: 20230418
  Serious: Yes (Death, Hospitalization)
  Sender: FDA-Public Use
  Company Number: CA-ABBVIE-4236123

PATIENT
  Sex: Male
  Weight: 124 kg

DRUGS (9)
  1. SKYRIZI [Suspect]
     Active Substance: RISANKIZUMAB-RZAA
     Indication: Psoriasis
     Route: 058
     Dates: start: 20200429, end: 20220328
  2. SKYRIZI [Suspect]
     Active Substance: RISANKIZUMAB-RZAA
     Route: 058
  3. MELATONIN [Concomitant]
     Active Substance: MELATONIN
     Indication: Insomnia
     Route: 048
     Dates: start: 2022
  4. ROSUVASTATIN [Concomitant]
     Active Substance: ROSUVASTATIN
     Indication: Dyslipidaemia
     Route: 048
     Dates: start: 20220314
  5. SPIRONOLACTONE [Concomitant]
     Active Substance: SPIRONOLACTONE
     Indication: Portal hypertension
     Route: 048
     Dates: start: 20220314
  6. QUETIAPINE [Concomitant]
     Active Substance: QUETIAPINE
     Indication: Insomnia
     Route: 048
     Dates: start: 20220314
  7. APIXABAN [Concomitant]
     Active Substance: APIXABAN
     Indication: Thrombosis prophylaxis
     Route: 048
     Dates: start: 20220314
  8. FUROSEMIDE [Concomitant]
     Active Substance: FUROSEMIDE
     Indication: Portal hypertension
     Route: 048
     Dates: start: 20220314
  9. CITALOPRAM [Concomitant]
     Active Substance: CITALOPRAM HYDROBROMIDE
     Indication: Depression
     Route: 048
     Dates: start: 2022

REACTIONS (11)
  - Multiple organ dysfunction syndrome [Fatal]
  - Tricuspid valve incompetence [Unknown]
  - Vein disorder [Unknown]
  - Bradycardia [Unknown]
  - Right ventricular enlargement [Unknown]
  - Renal injury [Unknown]
  - Hypervolaemia [Unknown]
  - Diastolic dysfunction [Unknown]
  - Hypotension [Unknown]
  - Right ventricular dysfunction [Unknown]
  - Anuria [Unknown]
